FAERS Safety Report 8954611 (Version 1)
Quarter: 2012Q4

REPORT INFORMATION
  Report Type: Spontaneous
  Country: US (occurrence: None)
  Receive Date: 20121205
  Receipt Date: 20121205
  Transmission Date: 20130627
  Serious: Yes (Life-Threatening)
  Sender: FDA-Public Use
  Company Number: None

PATIENT
  Age: 68 Year
  Sex: Male
  Weight: 81.65 kg

DRUGS (1)
  1. ARIPIPRAZOLE [Suspect]
     Indication: DEPRESSION
     Dosage: 10mg once a day po
     Route: 048

REACTIONS (5)
  - Muscle disorder [None]
  - Hypoaesthesia [None]
  - Cardiac flutter [None]
  - Extrasystoles [None]
  - Movement disorder [None]
